FAERS Safety Report 7958194-7 (Version None)
Quarter: 2011Q4

REPORT INFORMATION
  Report Type: 
  Country: None (occurrence: None)
  Receive Date: 20111205
  Receipt Date: 20111130
  Transmission Date: 20120403
  Serious: Yes (Hospitalization)
  Sender: FDA-Public Use
  Company Number: FR-PFIZER INC-2011292098

PATIENT
  Age: 80 Year
  Sex: Female

DRUGS (6)
  1. ACETAMINOPHEN AND TRAMADOL HCL [Suspect]
     Indication: SCIATICA
     Dosage: UNK
     Route: 048
     Dates: start: 20110801
  2. PAROXETINE HCL [Suspect]
     Dosage: 20 MG/DAY
     Route: 048
  3. ATENOLOL [Concomitant]
     Dosage: 1 TABLET/DAY
  4. XANAX [Suspect]
     Indication: ANXIETY
     Dosage: 0.5 MG/DAY
     Route: 048
  5. INDAPAMIDE [Suspect]
     Dosage: 1 DF/DAY
     Route: 048
     Dates: end: 20110830
  6. ASPIRIN [Suspect]
     Dosage: 1 DF/DAY
     Route: 048
     Dates: end: 20110905

REACTIONS (4)
  - HYPOKALAEMIA [None]
  - VOMITING [None]
  - DEHYDRATION [None]
  - HYPONATRAEMIA [None]
